FAERS Safety Report 5862866-8 (Version None)
Quarter: 2008Q3

REPORT INFORMATION
  Report Type: 
  Country: None (occurrence: None)
  Receive Date: 20080828
  Receipt Date: 20080822
  Transmission Date: 20090109
  Serious: Yes (Hospitalization)
  Sender: FDA-Public Use
  Company Number: A0731201A

PATIENT
  Age: 45 Year
  Sex: Male
  Weight: 88.6 kg

DRUGS (7)
  1. AVANDIA [Suspect]
     Indication: TYPE 2 DIABETES MELLITUS
     Dosage: 8MG PER DAY
     Route: 048
     Dates: start: 20030501, end: 20070518
  2. AVANDAMET [Suspect]
     Indication: TYPE 2 DIABETES MELLITUS
     Route: 048
     Dates: start: 20010101, end: 20030501
  3. METFORMIN HCL [Concomitant]
     Dates: start: 19990101
  4. REGULAR INSULIN [Concomitant]
     Dates: start: 20050901
  5. LANTUS [Concomitant]
     Dates: start: 20050901
  6. PROTONIX [Concomitant]
  7. PREVACID [Concomitant]

REACTIONS (10)
  - CARDIAC ARREST [None]
  - CARDIAC DISORDER [None]
  - CEREBROVASCULAR ACCIDENT [None]
  - FLUID OVERLOAD [None]
  - FLUID RETENTION [None]
  - HEPATIC FAILURE [None]
  - INJURY [None]
  - LIVER INJURY [None]
  - MYOCARDIAL INFARCTION [None]
  - PULMONARY HYPERTENSION [None]
